FAERS Safety Report 7632027-0 (Version None)
Quarter: 2011Q3

REPORT INFORMATION
  Report Type: 
  Country: None (occurrence: None)
  Receive Date: 20110725
  Receipt Date: 20100804
  Transmission Date: 20111222
  Serious: Yes (Other)
  Sender: FDA-Public Use
  Company Number: US-BRISTOL-MYERS SQUIBB COMPANY-15089410

PATIENT
  Age: 68 Year
  Sex: Male
  Weight: 82 kg

DRUGS (6)
  1. LOVENOX [Suspect]
     Indication: THROMBOSIS
     Dates: start: 20100101, end: 20100430
  2. VITAMIN TAB [Concomitant]
  3. FISH OIL [Concomitant]
  4. COUMADIN [Suspect]
     Indication: THROMBOSIS
     Dosage: 10MG DAILY ON MONDAY,WEDNESDAY +FRIDAY AND 7.5MG DAILY ON ALL OTHER DAYS
     Dates: start: 20100101
  5. COENZYME Q10 [Concomitant]
  6. ZOCOR [Concomitant]

REACTIONS (2)
  - HEADACHE [None]
  - INTERNATIONAL NORMALISED RATIO DECREASED [None]
